FAERS Safety Report 25852475 (Version 1)
Quarter: 2025Q3

REPORT INFORMATION
  Report Type: Spontaneous
  Country: US (occurrence: None)
  Receive Date: 20250926
  Receipt Date: 20250926
  Transmission Date: 20251021
  Serious: Yes (Hospitalization)
  Sender: FDA-CTU
  Company Number: None

PATIENT
  Age: 78 Year
  Sex: Male
  Weight: 73 kg

DRUGS (2)
  1. LENVATINIB MESYLATE [Suspect]
     Active Substance: LENVATINIB MESYLATE
     Dates: end: 20250818
  2. PEMBROLIZUMAB [Suspect]
     Active Substance: PEMBROLIZUMAB
     Dates: end: 20250802

REACTIONS (13)
  - Malnutrition [None]
  - Decreased appetite [None]
  - Hypophagia [None]
  - Drug intolerance [None]
  - Nausea [None]
  - Drug ineffective [None]
  - Therapy interrupted [None]
  - Fatigue [None]
  - Refusal of treatment by patient [None]
  - Agitation [None]
  - Frustration tolerance decreased [None]
  - Poor venous access [None]
  - Vomiting [None]

NARRATIVE: CASE EVENT DATE: 20250820
